FAERS Safety Report 10275857 (Version 1)
Quarter: 2014Q3

REPORT INFORMATION
  Report Type: Spontaneous
  Country: US (occurrence: None)
  Receive Date: 20140701
  Receipt Date: 20140701
  Transmission Date: 20150326
  Serious: Yes (Other)
  Sender: FDA-Public Use
  Company Number: 2014JUB00024

PATIENT
  Age: 72 Year
  Sex: Male

DRUGS (8)
  1. RANITIDINE [Concomitant]
     Active Substance: RANITIDINE\RANITIDINE HYDROCHLORIDE
  2. ASPIRIN (ACETYLSALICYCLIC ACID) [Concomitant]
     Active Substance: ASPIRIN
  3. FENOBIBRATE (FENOFIBRATE) [Concomitant]
  4. GEMFIBROZIL (GEMFIBROZIL) [Concomitant]
     Active Substance: GEMFIBROZIL
  5. SIMVASTATIN (SIMVASTATIN) [Concomitant]
     Active Substance: SIMVASTATIN
  6. HYDROCHLOROTHIAZIDE (HYDROCHLOROTHIAZIDE) UNKNOWN [Suspect]
     Active Substance: HYDROCHLOROTHIAZIDE
  7. ATENOLOL (ATENOLOL) [Concomitant]
     Active Substance: ATENOLOL
  8. TRIAMTERENE (TRIAMTERENE) [Concomitant]
     Active Substance: TRIAMTERENE

REACTIONS (1)
  - Subacute cutaneous lupus erythematosus [None]
